FAERS Safety Report 10191632 (Version 2)
Quarter: 2014Q2

REPORT INFORMATION
  Report Type: Report from Study
  Country: JP (occurrence: JP)
  Receive Date: 20140523
  Receipt Date: 20140523
  Transmission Date: 20141212
  Serious: Yes (Hospitalization)
  Sender: FDA-Public Use
  Company Number: JP-ELI_LILLY_AND_COMPANY-JP201405000405

PATIENT
  Age: 73 Year
  Sex: Male
  Weight: 48.3 kg

DRUGS (15)
  1. NECITUMUMAB (11F8) (LY3012211) [Suspect]
     Indication: NON-SMALL CELL LUNG CANCER STAGE IV
     Dosage: 800 MG, OTHER
     Route: 042
     Dates: start: 20140411
  2. GEMCITABINE HYDROCHLORIDE [Suspect]
     Indication: NON-SMALL CELL LUNG CANCER STAGE IV
     Dosage: 1250 MG/M2, OTHER
     Route: 042
     Dates: start: 20140411
  3. CISPLATIN [Suspect]
     Indication: NON-SMALL CELL LUNG CANCER STAGE IV
     Dosage: 75 MG/M2, OTHER
     Route: 042
     Dates: start: 20140411
  4. OXYCONTIN [Concomitant]
     Indication: CANCER PAIN
     Dosage: 10 MG, BID
     Route: 048
  5. TEPRENONE [Concomitant]
     Indication: GASTRITIS
     Dosage: 50 MG, TID
     Route: 048
  6. NAIXAN [Concomitant]
     Indication: TUMOUR ASSOCIATED FEVER
     Dosage: 200 MG, TID
     Route: 048
  7. OXINORM [Concomitant]
     Indication: CANCER PAIN
     Dosage: UNK, PRN
     Route: 048
  8. TAKEPRON [Concomitant]
     Indication: GASTRITIS
     Dosage: 5 MG, TID
     Route: 048
  9. MAGMITT [Concomitant]
     Indication: CONSTIPATION
     Dosage: UNK, PRN
     Route: 048
  10. YODEL [Concomitant]
     Indication: CONSTIPATION
     Dosage: UNK, PRN
     Route: 048
  11. KENALOG [Concomitant]
     Indication: STOMATITIS
     Dosage: UNK, PRN
     Route: 048
  12. ZOLPIDEM [Concomitant]
     Indication: INSOMNIA
     Dosage: 10 MG, QD
     Route: 048
  13. HACHIAZULE [Concomitant]
     Indication: STOMATITIS
     Dosage: 1 DF, UNK
     Route: 048
  14. HEPARINOID [Concomitant]
     Indication: DRY SKIN
     Dosage: UNK
     Route: 062
  15. ENSURE                             /06184901/ [Concomitant]
     Dosage: UNK, PRN
     Route: 048

REACTIONS (1)
  - Bronchopneumonia [Recovered/Resolved]
